FAERS Safety Report 13030981 (Version 1)
Quarter: 2016Q4

REPORT INFORMATION
  Report Type: Spontaneous
  Country: US (occurrence: US)
  Receive Date: 20161215
  Receipt Date: 20161215
  Transmission Date: 20170207
  Serious: No
  Sender: FDA-Public Use
  Company Number: US-TARO-2016TAR00920

PATIENT
  Sex: Female

DRUGS (2)
  1. HYDROCORTISONE CREAM USP 2.5% [Suspect]
     Active Substance: HYDROCORTISONE
     Indication: HAEMORRHOIDS
  2. HYDROCORTISONE CREAM USP 2.5% [Suspect]
     Active Substance: HYDROCORTISONE
     Indication: HAEMORRHOIDS

REACTIONS (2)
  - Drug ineffective for unapproved indication [Unknown]
  - Off label use [None]
